FAERS Safety Report 8015807-1 (Version None)
Quarter: 2011Q4

REPORT INFORMATION
  Report Type: 
  Country: None (occurrence: None)
  Receive Date: 20111230
  Receipt Date: 20111223
  Transmission Date: 20120403
  Serious: Yes (Hospitalization)
  Sender: FDA-Public Use
  Company Number: NL-ROCHE-1024858

PATIENT
  Sex: Male
  Weight: 66 kg

DRUGS (4)
  1. DEXAMETHASONE [Suspect]
     Indication: CHRONIC LYMPHOCYTIC LEUKAEMIA
     Dosage: DATE OF LAST DOSE PRIOR TO SAE: 25 NOV 2011
     Route: 048
     Dates: start: 20111122
  2. MABTHERA [Suspect]
     Indication: CHRONIC LYMPHOCYTIC LEUKAEMIA
     Dosage: DATE OF LAST DOSE PRIOR TO SAE: 22 NOV 2011
     Route: 042
     Dates: start: 20111122
  3. CYTARABINE [Suspect]
     Indication: CHRONIC LYMPHOCYTIC LEUKAEMIA
     Dosage: DATE OF LAST DOSE PRIOR TO SAE: 23 NOV 2011
     Route: 042
     Dates: start: 20111123
  4. CISPLATIN [Suspect]
     Indication: CHRONIC LYMPHOCYTIC LEUKAEMIA
     Dosage: DATE OF LAST DOSE PRIOR TO SAE: 22 NOV 2011
     Route: 042
     Dates: start: 20111122

REACTIONS (1)
  - PERICORONITIS [None]
